FAERS Safety Report 21840433 (Version 1)
Quarter: 2023Q1

REPORT INFORMATION
  Report Type: Spontaneous
  Country: US (occurrence: US)
  Receive Date: 20230110
  Receipt Date: 20230110
  Transmission Date: 20230418
  Serious: No
  Sender: FDA-Public Use
  Company Number: US-TEVA-2022-US-2841709

PATIENT
  Age: 71 Year
  Sex: Female

DRUGS (1)
  1. AMOXICILLIN [Suspect]
     Active Substance: AMOXICILLIN
     Indication: Product used for unknown indication
     Dosage: 250 MG/5 ML SUSPENSION
     Route: 065

REACTIONS (8)
  - Oral pain [Unknown]
  - Swollen tongue [Unknown]
  - Glossodynia [Unknown]
  - Noninfective gingivitis [Unknown]
  - Gingival discolouration [Unknown]
  - Plicated tongue [Unknown]
  - Candida infection [Unknown]
  - Vulvovaginal pruritus [Recovering/Resolving]
